FAERS Safety Report 23639491 (Version 1)
Quarter: 2024Q1

REPORT INFORMATION
  Report Type: Spontaneous
  Country: FR (occurrence: FR)
  Receive Date: 20240316
  Receipt Date: 20240316
  Transmission Date: 20240409
  Serious: Yes (Life-Threatening)
  Sender: FDA-Public Use
  Company Number: None

PATIENT
  Age: 83 Year
  Sex: Male

DRUGS (4)
  1. VINCRISTINE SULFATE [Suspect]
     Active Substance: VINCRISTINE SULFATE
     Indication: Follicular lymphoma stage IV
     Route: 042
     Dates: start: 20240117, end: 20240117
  2. PREDNISONE [Interacting]
     Active Substance: PREDNISONE
     Indication: Follicular lymphoma stage IV
     Route: 048
     Dates: start: 20240117, end: 20240121
  3. RITUXIMAB [Interacting]
     Active Substance: RITUXIMAB
     Indication: Follicular lymphoma stage IV
     Dosage: ((MAMMAL/HAMSTER/CHO CELLS))
     Route: 058
     Dates: start: 20240117, end: 20240117
  4. CYCLOPHOSPHAMIDE [Interacting]
     Active Substance: CYCLOPHOSPHAMIDE
     Indication: Follicular lymphoma stage IV
     Route: 042
     Dates: start: 20240117, end: 20240117

REACTIONS (2)
  - Sepsis [Recovered/Resolved]
  - Drug interaction [Recovered/Resolved]

NARRATIVE: CASE EVENT DATE: 20240124
